FAERS Safety Report 24674379 (Version 1)
Quarter: 2024Q4

REPORT INFORMATION
  Report Type: Other
  Country: GB (occurrence: GB)
  Receive Date: 20241128
  Receipt Date: 20241128
  Transmission Date: 20250114
  Serious: Yes (Death, Hospitalization, Other)
  Sender: STRIDES
  Company Number: GB-PHARMVIT-4556-3352-ER24-RN1227

PATIENT
  Age: 60 Year
  Sex: Female

DRUGS (2)
  1. PREDNISOLONE [Suspect]
     Active Substance: PREDNISOLONE
     Indication: Product used for unknown indication
     Dosage: 40 MILLIGRAM
     Route: 065
  2. SIROLIMUS [Concomitant]
     Active Substance: SIROLIMUS
     Indication: Product used for unknown indication
     Dosage: UNK
     Route: 065

REACTIONS (3)
  - End stage renal disease [Fatal]
  - Immunosuppression [Recovered/Resolved]
  - Mycobacterium chelonae infection [Recovered/Resolved]
